FAERS Safety Report 7716411-2 (Version None)
Quarter: 2011Q3

REPORT INFORMATION
  Report Type: 
  Country: None (occurrence: None)
  Receive Date: 20110829
  Receipt Date: 20110819
  Transmission Date: 20111222
  Serious: Yes (Other)
  Sender: FDA-Public Use
  Company Number: GB-ASTRAZENECA-2011SE49864

PATIENT
  Age: 67 Year
  Sex: Female

DRUGS (1)
  1. VIMOVO [Suspect]
     Dosage: 2 TABLET
     Route: 048

REACTIONS (3)
  - NAUSEA [None]
  - FEELING HOT [None]
  - VERTIGO [None]
